FAERS Safety Report 15955355 (Version 1)
Quarter: 2019Q1

REPORT INFORMATION
  Report Type: Spontaneous
  Country: GB (occurrence: GB)
  Receive Date: 20190213
  Receipt Date: 20190213
  Transmission Date: 20190417
  Serious: Yes (Hospitalization)
  Sender: FDA-Public Use
  Company Number: GB-DEXPHARM-20190087

PATIENT
  Age: 92 Year
  Sex: Male

DRUGS (11)
  1. HYDRALAZINE [Interacting]
     Active Substance: HYDRALAZINE HYDROCHLORIDE
     Dosage: MORNING
  2. FLUDROCORTISONE [Interacting]
     Active Substance: FLUDROCORTISONE
  3. BISOPROLOL [Concomitant]
     Active Substance: BISOPROLOL
  4. ATORVASTATIN [Concomitant]
     Active Substance: ATORVASTATIN
     Dosage: MORNING
  5. ADCAL-D3 [Concomitant]
     Active Substance: CALCIUM CARBONATE\CHOLECALCIFEROL
  6. ACETYLSALICYLIC ACID [Concomitant]
     Active Substance: ASPIRIN
  7. GLYCERYL TRINITRATE [Concomitant]
     Active Substance: NITROGLYCERIN
     Dosage: AS NECESSARY
  8. OMEPRAZOLE. [Suspect]
     Active Substance: OMEPRAZOLE
  9. TICAGRELOR. [Concomitant]
     Active Substance: TICAGRELOR
  10. FUROSEMIDE. [Suspect]
     Active Substance: FUROSEMIDE
     Dosage: MORNING
  11. RANOLAZINE. [Concomitant]
     Active Substance: RANOLAZINE
     Dosage: MORNING

REACTIONS (1)
  - Hyponatraemia [Recovered/Resolved]
